FAERS Safety Report 13540890 (Version 1)
Quarter: 2017Q2

REPORT INFORMATION
  Report Type: Spontaneous
  Country: US (occurrence: US)
  Receive Date: 20170512
  Receipt Date: 20170512
  Transmission Date: 20170830
  Serious: No
  Sender: FDA-Public Use
  Company Number: US-JUBILANT CADISTA PHARMACEUTICALS-2016JUB00311

PATIENT
  Age: 13 Year
  Sex: Male

DRUGS (1)
  1. VALACYCLOVIR HCL TABLETS USP 500 MG [Suspect]
     Active Substance: VALACYCLOVIR HYDROCHLORIDE
     Indication: ORAL HERPES
     Dosage: UNK, 2X/DAY

REACTIONS (1)
  - Vomiting [Recovered/Resolved]
